FAERS Safety Report 11228787 (Version 1)
Quarter: 2015Q2

REPORT INFORMATION
  Report Type: Spontaneous
  Country: US (occurrence: US)
  Receive Date: 20150630
  Receipt Date: 20150630
  Transmission Date: 20150821
  Serious: Yes (Hospitalization, Other)
  Sender: FDA-Public Use
  Company Number: US-BAXTER-2015BAX034826

PATIENT
  Age: 54 Year
  Sex: Female

DRUGS (3)
  1. DOBUTAMINE HYDROCHLORIDE IN DEXTROSE [Suspect]
     Active Substance: DEXTROSE MONOHYDRATE\DEXTROSE MONOHYDRATE\DOBUTAMINE HYDROCHLORIDE\DOBUTAMINE HYDROCHLORIDE
     Indication: STRESS ECHOCARDIOGRAM
     Dosage: 10 MICROGRAM PER KG PER MINUTE, DOSE INCREASED IN INCREMENTS OF 10 MICROGRAM PER KG PER MINUTE EVERY
     Route: 042
  2. DOBUTAMINE HYDROCHLORIDE IN DEXTROSE [Suspect]
     Active Substance: DEXTROSE MONOHYDRATE\DEXTROSE MONOHYDRATE\DOBUTAMINE HYDROCHLORIDE\DOBUTAMINE HYDROCHLORIDE
     Indication: OFF LABEL USE
     Dosage: HIGEST DOSE OF 40 MICROGRAM PER KG PER MINUTE
     Route: 042
  3. ATROPINE [Suspect]
     Active Substance: ATROPINE
     Indication: STRESS ECHOCARDIOGRAM
     Route: 042

REACTIONS (4)
  - Chest discomfort [Recovered/Resolved]
  - Headache [Recovered/Resolved]
  - Transient global amnesia [Recovered/Resolved with Sequelae]
  - Palpitations [Recovered/Resolved]
